FAERS Safety Report 18192875 (Version 1)
Quarter: 2020Q3

REPORT INFORMATION
  Report Type: Spontaneous
  Country: US (occurrence: US)
  Receive Date: 20200825
  Receipt Date: 20200825
  Transmission Date: 20201103
  Serious: Yes (Life-Threatening, Hospitalization)
  Sender: FDA-Public Use
  Company Number: None

PATIENT
  Age: 59 Year
  Sex: Male
  Weight: 90 kg

DRUGS (12)
  1. LOSARTIN [Concomitant]
     Active Substance: LOSARTAN
  2. XANAX [Concomitant]
     Active Substance: ALPRAZOLAM
  3. COZAAR [Concomitant]
     Active Substance: LOSARTAN POTASSIUM
  4. LIPITOR [Concomitant]
     Active Substance: ATORVASTATIN CALCIUM
  5. NORVASK [Concomitant]
     Active Substance: AMLODIPINE BESYLATE
  6. FLUOROURACIL. [Suspect]
     Active Substance: FLUOROURACIL
     Indication: ACTINIC KERATOSIS
     Dosage: ?          QUANTITY:2 FOREARM COVERAGE;?
     Route: 061
     Dates: start: 20170116
  7. PAROXATENE [Concomitant]
  8. ZETIA [Concomitant]
     Active Substance: EZETIMIBE
  9. ASPIRIN. [Concomitant]
     Active Substance: ASPIRIN
  10. ASPIRIN. [Concomitant]
     Active Substance: ASPIRIN
  11. BRILINTA [Concomitant]
     Active Substance: TICAGRELOR
  12. COREG [Concomitant]
     Active Substance: CARVEDILOL

REACTIONS (3)
  - Illness [None]
  - Epstein-Barr virus infection [None]
  - Immunodeficiency [None]
